FAERS Safety Report 8826884 (Version 2)
Quarter: 2012Q4

REPORT INFORMATION
  Report Type: 
  Country: US (occurrence: US)
  Receive Date: 20121005
  Receipt Date: 20121016
  Transmission Date: 20130627
  Serious: Yes (Hospitalization)
  Sender: FDA-Public Use
  Company Number: US-ALEXION PHARMACEUTICALS INC.-A201201875

PATIENT
  Age: 33 None
  Sex: Female
  Weight: 106 kg

DRUGS (17)
  1. SOLIRIS 300MG [Suspect]
     Indication: PAROXYSMAL NOCTURNAL HAEMOGLOBINURIA
     Dosage: 600 mg, UNK
     Route: 042
  2. SOLIRIS 300MG [Suspect]
     Dosage: 900 mg, q2w
     Route: 042
     Dates: end: 20100723
  3. SOLIRIS 300MG [Suspect]
     Dosage: 1200 mg, q2w
     Dates: start: 20100818
  4. EXJADE [Concomitant]
     Indication: IRON OVERLOAD
     Dosage: UNK
  5. XANAX [Concomitant]
  6. AMBIEN [Concomitant]
  7. ARIXTRA [Concomitant]
  8. CARAFATE [Concomitant]
  9. CYCLOBENZAPRINE [Concomitant]
     Dosage: UNK
  10. LOMOTIL [Concomitant]
     Dosage: UNK
  11. HYDROCODONE [Concomitant]
     Dosage: UNK
  12. MECLIZINE [Concomitant]
     Dosage: UNK
  13. PRILOSEC [Concomitant]
     Dosage: UNK
  14. COMPAZINE [Concomitant]
     Dosage: UNK
  15. TRAMADOLE [Concomitant]
     Dosage: UNK
  16. ZOLPIDEM [Concomitant]
     Dosage: UNK
  17. DILAUDID [Concomitant]
     Dosage: UNK

REACTIONS (4)
  - Pain [Unknown]
  - Anaemia [Unknown]
  - Gastroenteritis viral [Unknown]
  - Malaise [Unknown]
